FAERS Safety Report 5829331-5 (Version None)
Quarter: 2008Q3

REPORT INFORMATION
  Report Type: 
  Country: None (occurrence: None)
  Receive Date: 20080731
  Receipt Date: 20080722
  Transmission Date: 20090109
  Serious: Yes (Other)
  Sender: FDA-Public Use
  Company Number: GR-BOEHRINGER INGELHEIM GMBH, GERMANY-2008-DE-04310VA

PATIENT
  Age: 70 Year
  Sex: Female

DRUGS (4)
  1. MELOXICAM [Suspect]
     Indication: PAIN IN EXTREMITY
     Route: 030
     Dates: start: 20080623
  2. APOTEL [Concomitant]
     Dates: start: 20080623
  3. SERETIDE INHALER [Concomitant]
     Route: 055
  4. DAFLON [Concomitant]

REACTIONS (3)
  - ERYTHEMA [None]
  - INJECTION SITE INFLAMMATION [None]
  - RASH [None]
